FAERS Safety Report 9125621 (Version 1)
Quarter: 2013Q1

REPORT INFORMATION
  Report Type: Spontaneous
  Country: US (occurrence: US)
  Receive Date: 20130121
  Receipt Date: 20130121
  Transmission Date: 20140127
  Serious: Yes (Hospitalization)
  Sender: FDA-Public Use
  Company Number: US-ELI_LILLY_AND_COMPANY-US201301005487

PATIENT
  Age: 51 Year
  Sex: Male

DRUGS (1)
  1. ADCIRCA [Suspect]
     Dosage: 20 MG, QD
     Route: 048

REACTIONS (2)
  - Dyspnoea [Unknown]
  - Rash [Unknown]
